FAERS Safety Report 7111592-6 (Version None)
Quarter: 2010Q4

REPORT INFORMATION
  Report Type: 
  Country: None (occurrence: None)
  Receive Date: 20101118
  Receipt Date: 20100201
  Transmission Date: 20110411
  Serious: No
  Sender: FDA-Public Use
  Company Number: US-TEVA-223285USA

PATIENT
  Sex: Female
  Weight: 113.5 kg

DRUGS (10)
  1. ALBUTEROL SULFATE AUTOHALER [Suspect]
     Route: 055
     Dates: start: 20081201, end: 20100126
  2. CAPTOPRIL [Concomitant]
  3. VERAPAMIL [Concomitant]
  4. FUROSEMIDE [Concomitant]
  5. THEOPHYLLINE [Concomitant]
  6. POTASSIUM CHLORIDE [Concomitant]
  7. GEMFIBROZIL [Concomitant]
  8. EZETIMIBE [Concomitant]
  9. PAROXETINE HYDROCHLORIDE [Concomitant]
  10. PIOGLITAZONE [Concomitant]

REACTIONS (1)
  - EPISTAXIS [None]
